FAERS Safety Report 15639000 (Version 1)
Quarter: 2018Q4

REPORT INFORMATION
  Report Type: Spontaneous
  Country: US (occurrence: US)
  Receive Date: 20181120
  Receipt Date: 20181120
  Transmission Date: 20190205
  Serious: No
  Sender: FDA-Public Use
  Company Number: US-CIPLA LTD.-2018US20647

PATIENT

DRUGS (8)
  1. AZELASTINE HCL [Concomitant]
     Active Substance: AZELASTINE HYDROCHLORIDE
     Indication: DRY EYE
     Dosage: UNK, BID
     Route: 065
     Dates: start: 2017
  2. LOMOTIL [Concomitant]
     Active Substance: ATROPINE SULFATE\DIPHENOXYLATE HYDROCHLORIDE
     Indication: IRRITABLE BOWEL SYNDROME
     Dosage: 2.5/0.025 MG/ TWO WHEN NECESSARY
     Route: 065
  3. GABAPENTIN. [Suspect]
     Active Substance: GABAPENTIN
     Indication: ANXIETY
     Dosage: 100 MG, BID
     Route: 048
     Dates: start: 20180731
  4. HYDROCHLOROTHIAZIDE. [Concomitant]
     Active Substance: HYDROCHLOROTHIAZIDE
     Indication: HYPERTENSION
     Dosage: 25 MG, QD
     Route: 065
     Dates: start: 1977
  5. DULOXETINE. [Concomitant]
     Active Substance: DULOXETINE
     Indication: DEPRESSION
     Dosage: 30 MG, ONCE A DAY
     Route: 065
  6. VERAPAMIL [Concomitant]
     Active Substance: VERAPAMIL HYDROCHLORIDE
     Indication: HYPERTENSION
     Dosage: 240 MG, QD
     Route: 065
     Dates: start: 1977
  7. DULOXETINE. [Concomitant]
     Active Substance: DULOXETINE
     Dosage: 30 MG, ONCE IN THREE DAYS
     Route: 065
     Dates: start: 20171225
  8. XOLAIR [Concomitant]
     Active Substance: OMALIZUMAB
     Indication: URTICARIA
     Dosage: UNK, 3 SHOTS PER EVERY MONTH
     Route: 065
     Dates: start: 201712

REACTIONS (1)
  - Product prescribing error [Unknown]

NARRATIVE: CASE EVENT DATE: 20180731
